APPROVED DRUG PRODUCT: OSELTAMIVIR PHOSPHATE
Active Ingredient: OSELTAMIVIR PHOSPHATE
Strength: EQ 30MG BASE
Dosage Form/Route: CAPSULE;ORAL
Application: A208578 | Product #001 | TE Code: AB
Applicant: ZYDUS PHARMACEUTICALS USA INC
Approved: Feb 24, 2017 | RLD: No | RS: No | Type: RX